FAERS Safety Report 15310215 (Version 7)
Quarter: 2018Q4

REPORT INFORMATION
  Report Type: Spontaneous
  Country: US (occurrence: US)
  Receive Date: 20180823
  Receipt Date: 20181128
  Transmission Date: 20190204
  Serious: No
  Sender: FDA-Public Use
  Company Number: US-PFIZER INC-2018339995

PATIENT
  Age: 64 Year
  Sex: Female

DRUGS (14)
  1. MORPHINE SULFATE. [Suspect]
     Active Substance: MORPHINE SULFATE
     Dosage: UNK
  2. PRAVASTATIN. [Suspect]
     Active Substance: PRAVASTATIN
     Dosage: UNK
  3. AMBIEN [Suspect]
     Active Substance: ZOLPIDEM TARTRATE
     Dosage: UNK
  4. ASA [Suspect]
     Active Substance: ASPIRIN
     Dosage: UNK
  5. SIMVASTATIN. [Suspect]
     Active Substance: SIMVASTATIN
     Dosage: UNK
  6. ENBREL [Suspect]
     Active Substance: ETANERCEPT
     Indication: RHEUMATOID ARTHRITIS
     Dosage: 50 MG, WEEKLY
  7. PROTONIX [Suspect]
     Active Substance: PANTOPRAZOLE SODIUM
     Dosage: UNK
  8. ADVIL [Suspect]
     Active Substance: IBUPROFEN
     Dosage: UNK
  9. METHOTREXATE SODIUM. [Suspect]
     Active Substance: METHOTREXATE SODIUM
     Indication: RHEUMATOID ARTHRITIS
     Dosage: UNK
  10. ACTEMRA [Suspect]
     Active Substance: TOCILIZUMAB
     Indication: RHEUMATOID ARTHRITIS
     Dosage: UNK
  11. FENTANYL CITRATE. [Suspect]
     Active Substance: FENTANYL CITRATE
     Dosage: UNK
  12. PRIMIDONE. [Suspect]
     Active Substance: PRIMIDONE
     Dosage: UNK
  13. AMOXICILLIN. [Suspect]
     Active Substance: AMOXICILLIN
     Dosage: UNK
  14. PHENERGAN [Suspect]
     Active Substance: PROMETHAZINE HYDROCHLORIDE
     Dosage: UNK

REACTIONS (2)
  - Drug hypersensitivity [Unknown]
  - Tuberculin test positive [Unknown]

NARRATIVE: CASE EVENT DATE: 20180315
